FAERS Safety Report 10023470 (Version 1)
Quarter: 2013Q4

REPORT INFORMATION
  Report Type: Spontaneous
  Country: JP (occurrence: None)
  Receive Date: 20131226
  Receipt Date: 20131226
  Transmission Date: 20140711
  Serious: Yes (Life-Threatening)
  Sender: FDA-Public Use
  Company Number: SYM-2013-13411

PATIENT
  Age: 52 Year
  Sex: Male
  Weight: 54 kg

DRUGS (3)
  1. CHOREAZINE [Suspect]
     Indication: HUNTINGTON^S DISEASE
     Dosage: 12.5 MG, 1 IN 1 D, ORAL?
     Route: 048
     Dates: start: 20130528, end: 20130624
  2. LENDORMIN (BROTIZOLAM) (BROTIZOLAM) [Concomitant]
  3. SERENACE (HALOPERIDOL) (HALOPERIDOL) [Concomitant]

REACTIONS (1)
  - Suicide attempt [None]
